FAERS Safety Report 14362974 (Version 3)
Quarter: 2019Q1

REPORT INFORMATION
  Report Type: Spontaneous
  Country: US (occurrence: US)
  Receive Date: 20180108
  Receipt Date: 20190108
  Transmission Date: 20190417
  Serious: No
  Sender: FDA-Public Use
  Company Number: US-JNJFOC-20171222051

PATIENT
  Age: 59 Year
  Sex: Female

DRUGS (13)
  1. METFORMIN [Concomitant]
     Active Substance: METFORMIN HYDROCHLORIDE
     Route: 065
  2. ROSUVASTATIN. [Concomitant]
     Active Substance: ROSUVASTATIN
     Route: 065
  3. GLIMEPIRIDE. [Concomitant]
     Active Substance: GLIMEPIRIDE
     Route: 065
  4. LISINOPRIL. [Concomitant]
     Active Substance: LISINOPRIL
     Route: 065
  5. CLOBETASOL [Concomitant]
     Active Substance: CLOBETASOL
     Route: 065
  6. CLOBETASOL [Concomitant]
     Active Substance: CLOBETASOL
     Route: 065
  7. FLUOCINOLONE [Concomitant]
     Active Substance: FLUOCINOLONE
     Route: 065
  8. FENOFIBRATE. [Concomitant]
     Active Substance: FENOFIBRATE
     Route: 065
  9. ACETAMINOPHEN. [Concomitant]
     Active Substance: ACETAMINOPHEN
     Route: 065
  10. VITAMIN D3 [Concomitant]
     Active Substance: CHOLECALCIFEROL
     Route: 065
  11. INSULIN [Concomitant]
     Active Substance: INSULIN NOS
     Route: 065
  12. TRAMADOL. [Concomitant]
     Active Substance: TRAMADOL
     Dosage: AS NEEDED
     Route: 065
  13. STELARA [Suspect]
     Active Substance: USTEKINUMAB
     Indication: PSORIASIS
     Route: 058
     Dates: start: 201708

REACTIONS (2)
  - Syringe issue [Unknown]
  - Product dose omission [Unknown]

NARRATIVE: CASE EVENT DATE: 20171213
